FAERS Safety Report 25733619 (Version 2)
Quarter: 2025Q4

REPORT INFORMATION
  Report Type: Spontaneous
  Country: EU (occurrence: EU)
  Receive Date: 20250828
  Receipt Date: 20251224
  Transmission Date: 20260117
  Serious: Yes (Other)
  Sender: SUNOVION
  Company Number: EU-BIAL-BIAL-19696

PATIENT
  Age: 92 Year
  Sex: Female

DRUGS (2)
  1. ESLICARBAZEPINE ACETATE [Suspect]
     Active Substance: ESLICARBAZEPINE ACETATE
     Indication: Trigeminal neuralgia
     Dosage: 200 MILLIGRAM, QD
     Route: 048
     Dates: start: 20250630, end: 20250707
  2. ESLICARBAZEPINE ACETATE [Suspect]
     Active Substance: ESLICARBAZEPINE ACETATE
     Dosage: 400 MILLIGRAM, QD
     Dates: start: 20250708, end: 20250714

REACTIONS (4)
  - Ventricular extrasystoles [Unknown]
  - Drug titration error [Unknown]
  - Underdose [Unknown]
  - Product use in unapproved indication [Recovered/Resolved]

NARRATIVE: CASE EVENT DATE: 20250630
